FAERS Safety Report 6174389-X (Version None)
Quarter: 2009Q2

REPORT INFORMATION
  Report Type: 
  Country: None (occurrence: None)
  Receive Date: 20090430
  Receipt Date: 20090421
  Transmission Date: 20091009
  Serious: Yes (Hospitalization, Disabling)
  Sender: FDA-Public Use
  Company Number: CA-GENENTECH-281679

PATIENT
  Age: 87 Year
  Sex: Female

DRUGS (1)
  1. AVASTIN [Suspect]
     Indication: PROPHYLAXIS
     Dosage: UNK
     Route: 031
     Dates: start: 20080901, end: 20081001

REACTIONS (1)
  - BLINDNESS [None]
